FAERS Safety Report 7415135-9 (Version None)
Quarter: 2011Q2

REPORT INFORMATION
  Report Type: 
  Country: None (occurrence: None)
  Receive Date: 20110414
  Receipt Date: 20110412
  Transmission Date: 20111010
  Serious: Yes (Life-Threatening, Hospitalization)
  Sender: FDA-Public Use
  Company Number: NL-ROCHE-770830

PATIENT
  Sex: Male
  Weight: 88 kg

DRUGS (3)
  1. PEGASYS [Suspect]
     Route: 058
     Dates: start: 20110331, end: 20110401
  2. METHADON [Concomitant]
     Dosage: FREQUENCY: QD
     Route: 048
     Dates: start: 19980101
  3. COPEGUS [Concomitant]
     Route: 048
     Dates: start: 20110331, end: 20110401

REACTIONS (1)
  - MENINGITIS PNEUMOCOCCAL [None]
